FAERS Safety Report 23774643 (Version 1)
Quarter: 2024Q2

REPORT INFORMATION
  Report Type: Spontaneous
  Country: IT (occurrence: IT)
  Receive Date: 20240423
  Receipt Date: 20240423
  Transmission Date: 20240716
  Serious: Yes (Other)
  Sender: FDA-Public Use
  Company Number: None

PATIENT
  Age: 54 Year
  Sex: Male

DRUGS (2)
  1. CAPECITABINE [Suspect]
     Active Substance: CAPECITABINE
     Indication: Rectal cancer
     Dosage: START OF THERAPY 09/23/2023 - THERAPY FOR 14 DAYS, EVERY 21 DAYS - V CYCLE,CAPECITABINA
     Route: 048
     Dates: start: 20231223, end: 20240105
  2. OXALIPLATIN [Suspect]
     Active Substance: OXALIPLATIN
     Indication: Rectal cancer
     Dosage: START OF THERAPY 09/22/2023 - THERAPY EVERY 21 DAYS - V CYCLE,OXALIPLATINO
     Route: 042
     Dates: start: 20231222, end: 20231222

REACTIONS (3)
  - Leukopenia [Recovering/Resolving]
  - Neutropenia [Recovering/Resolving]
  - Thrombocytopenia [Recovering/Resolving]

NARRATIVE: CASE EVENT DATE: 20240110
